FAERS Safety Report 22209134 (Version 2)
Quarter: 2023Q2

REPORT INFORMATION
  Report Type: Spontaneous
  Country: US (occurrence: US)
  Receive Date: 20230413
  Receipt Date: 20230421
  Transmission Date: 20230721
  Serious: Yes (Death)
  Sender: FDA-Public Use
  Company Number: US-KARYOPHARM-2023KPT001045

PATIENT

DRUGS (13)
  1. XPOVIO [Suspect]
     Active Substance: SELINEXOR
     Indication: Plasma cell myeloma
     Dosage: 40 MG
     Route: 048
     Dates: start: 20230325, end: 2023
  2. XPOVIO [Suspect]
     Active Substance: SELINEXOR
     Dosage: 20 MG
     Route: 048
     Dates: start: 2023, end: 20230413
  3. ACYCLOVIR [Concomitant]
     Active Substance: ACYCLOVIR
  4. ALLOPURINOL [Concomitant]
     Active Substance: ALLOPURINOL
  5. DEXAMETHASONE [Concomitant]
     Active Substance: DEXAMETHASONE
  6. METOPROLOL [Concomitant]
     Active Substance: METOPROLOL
  7. ONDANSETRON [Concomitant]
     Active Substance: ONDANSETRON
  8. PANTOPRAZOLE [Concomitant]
     Active Substance: PANTOPRAZOLE
  9. SIMVASTATIN [Concomitant]
     Active Substance: SIMVASTATIN
  10. TRAZODONE [Concomitant]
     Active Substance: TRAZODONE HYDROCHLORIDE
  11. VELCADE [Concomitant]
     Active Substance: BORTEZOMIB
  12. ZOLPIDEM TARTRATE [Concomitant]
     Active Substance: ZOLPIDEM TARTRATE
  13. LOPERAMIDE HYDROCHLORIDE [Concomitant]
     Active Substance: LOPERAMIDE HYDROCHLORIDE

REACTIONS (7)
  - Death [Fatal]
  - Diarrhoea [Recovered/Resolved]
  - Nausea [Not Recovered/Not Resolved]
  - Vomiting [Not Recovered/Not Resolved]
  - Asthenia [Not Recovered/Not Resolved]
  - Fatigue [Not Recovered/Not Resolved]
  - Decreased appetite [Not Recovered/Not Resolved]

NARRATIVE: CASE EVENT DATE: 20230301
